FAERS Safety Report 20580097 (Version 2)
Quarter: 2023Q1

REPORT INFORMATION
  Report Type: Report from Study
  Country: US (occurrence: US)
  Receive Date: 20220310
  Receipt Date: 20230309
  Transmission Date: 20230418
  Serious: No
  Sender: FDA-Public Use
  Company Number: US-ACADIA PHARMACEUTICALS INC.-ACA-2022-PIM-000531

PATIENT
  Age: 75 Year
  Sex: Male

DRUGS (17)
  1. NUPLAZID [Suspect]
     Active Substance: PIMAVANSERIN TARTRATE
     Indication: Parkinson^s disease psychosis
     Dosage: 10 MILLIGRAM, BID
     Route: 065
     Dates: start: 20220212
  2. NUPLAZID [Suspect]
     Active Substance: PIMAVANSERIN TARTRATE
     Indication: Delusion
  3. NUPLAZID [Suspect]
     Active Substance: PIMAVANSERIN TARTRATE
     Indication: Hallucination
  4. LANSOPRAZOLE [Concomitant]
     Active Substance: LANSOPRAZOLE
  5. CLONIDINE [Concomitant]
     Active Substance: CLONIDINE
  6. PAROXETINE [Concomitant]
     Active Substance: PAROXETINE
  7. METFORMIN [Concomitant]
     Active Substance: METFORMIN HYDROCHLORIDE
  8. MYRBETRIQ [Concomitant]
     Active Substance: MIRABEGRON
  9. FLUOXETINE [Concomitant]
     Active Substance: FLUOXETINE HYDROCHLORIDE
  10. NIFEDIPINE [Concomitant]
     Active Substance: NIFEDIPINE
  11. LEVOCETIRIZINE [Concomitant]
     Active Substance: LEVOCETIRIZINE
  12. GABAPENTIN [Concomitant]
     Active Substance: GABAPENTIN
  13. LISINOPRIL [Concomitant]
     Active Substance: LISINOPRIL
  14. CARBIDOPA [Concomitant]
     Active Substance: CARBIDOPA
  15. RIVASTIGMINE [Concomitant]
     Active Substance: RIVASTIGMINE
  16. NABUMETONE [Concomitant]
     Active Substance: NABUMETONE
  17. ATOMOXETINE [Concomitant]
     Active Substance: ATOMOXETINE

REACTIONS (3)
  - Adverse drug reaction [Recovering/Resolving]
  - Inappropriate schedule of product administration [Unknown]
  - Product dose omission issue [Unknown]

NARRATIVE: CASE EVENT DATE: 20220212
